FAERS Safety Report 17718002 (Version 2)
Quarter: 2022Q4

REPORT INFORMATION
  Report Type: Spontaneous
  Country: DE (occurrence: DE)
  Receive Date: 20200428
  Receipt Date: 20221202
  Transmission Date: 20230113
  Serious: Yes (Hospitalization)
  Sender: FDA-Public Use
  Company Number: None

PATIENT
  Age: 85 Year
  Sex: Male

DRUGS (11)
  1. FUROSEMIDE [Suspect]
     Active Substance: FUROSEMIDE
     Indication: Product used for unknown indication
     Dosage: 40 MG, 0.5-0-0-0
     Route: 048
  2. VANCOMYCIN [Suspect]
     Active Substance: VANCOMYCIN
     Indication: Product used for unknown indication
     Dosage: 125 MG/2TAG, 1-0-0-0
     Route: 048
  3. EDOXABAN [Concomitant]
     Active Substance: EDOXABAN
     Dosage: 30 MG, 1-0-0-0
     Route: 048
  4. AMIODARONE [Concomitant]
     Active Substance: AMIODARONE
     Dosage: 200 MG, 1-0-0-0
     Route: 048
  5. METOPROLOL [Concomitant]
     Active Substance: METOPROLOL
     Dosage: 47.5 MG, 0.5-0-0-0.5
     Route: 048
  6. EISEN [Concomitant]
     Dosage: 100 MG, 1-0-0-0
     Route: 048
  7. ATORVASTATIN [Concomitant]
     Active Substance: ATORVASTATIN
     Dosage: 20 MG, 0-0-0.5-0
     Route: 048
  8. TAMSULOSIN [Concomitant]
     Active Substance: TAMSULOSIN
     Dosage: 0.4 MG, 0-0-1-0
     Route: 048
  9. POTASSIUM [Concomitant]
     Active Substance: POTASSIUM
     Dosage: 40 MMOL/ 2TAG, 0-0-1-0
     Route: 048
  10. EDOXABAN TOSYLATE [Concomitant]
     Active Substance: EDOXABAN TOSYLATE
     Dosage: STRENGTH: 30MG,30 MG, 1-0-0-0
     Route: 048
  11. VANCOMYCIN [Suspect]
     Active Substance: VANCOMYCIN
     Indication: Product used for unknown indication
     Dosage: 250 MG/FOR A WEEK,DISCONTINUED
     Route: 048

REACTIONS (3)
  - General physical health deterioration [Unknown]
  - Condition aggravated [Unknown]
  - Acute kidney injury [Unknown]
